FAERS Safety Report 15531908 (Version 3)
Quarter: 2018Q4

REPORT INFORMATION
  Report Type: Spontaneous
  Country: US (occurrence: US)
  Receive Date: 20181019
  Receipt Date: 20181022
  Transmission Date: 20190205
  Serious: No
  Sender: FDA-Public Use
  Company Number: US-TEVA-2018-US-962938

PATIENT
  Sex: Female

DRUGS (3)
  1. DIAZEPAM TEVA [Suspect]
     Active Substance: DIAZEPAM
     Indication: INSOMNIA
  2. DIAZEPAM TEVA [Suspect]
     Active Substance: DIAZEPAM
     Indication: ANXIETY
     Route: 065
     Dates: end: 20181007
  3. DIAZEPAM MYLAN [Suspect]
     Active Substance: DIAZEPAM
     Route: 065

REACTIONS (9)
  - Balance disorder [Unknown]
  - Somnolence [Unknown]
  - Drug effect decreased [Unknown]
  - Wrong technique in product usage process [Unknown]
  - Hangover [Unknown]
  - Fatigue [Unknown]
  - Product quality issue [Unknown]
  - Feeling abnormal [Unknown]
  - Insomnia [Unknown]
